FAERS Safety Report 8256190-6 (Version None)
Quarter: 2012Q1

REPORT INFORMATION
  Report Type: 
  Country: None (occurrence: None)
  Receive Date: 20120330
  Receipt Date: 20120316
  Transmission Date: 20120608
  Serious: Yes (Death)
  Sender: FDA-Public Use
  Company Number: GER/ITL/12/0023636

PATIENT
  Age: 43 Year
  Sex: Male

DRUGS (5)
  1. CLOPIDEGREL [Suspect]
     Indication: CORONARY ANGIOPLASTY
     Dosage: 75 MG, ORAL
     Route: 048
     Dates: start: 20120218, end: 20120224
  2. ACETYLSALICYLIC ACID (ACDETYLSALICYLIC ACID) [Concomitant]
  3. RAMIPRIL [Concomitant]
  4. METOPROLOL TARTRATE [Concomitant]
  5. SIMVASTATIN [Concomitant]

REACTIONS (2)
  - VENTRICULAR FIBRILLATION [None]
  - CARDIAC ARREST [None]
